FAERS Safety Report 18259329 (Version 1)
Quarter: 2020Q3

REPORT INFORMATION
  Report Type: Spontaneous
  Country: PL (occurrence: PL)
  Receive Date: 20200911
  Receipt Date: 20200911
  Transmission Date: 20201103
  Serious: Yes (Other)
  Sender: FDA-Public Use
  Company Number: NVSC2020PL238589

PATIENT
  Age: 40 Year
  Sex: Female

DRUGS (4)
  1. DEXAMETHASONE. [Concomitant]
     Active Substance: DEXAMETHASONE
     Indication: PRODUCT USED FOR UNKNOWN INDICATION
     Dosage: 8 MG, QD
     Route: 065
  2. MIZODIN [Concomitant]
     Indication: TREMOR
     Dosage: UNK
     Route: 065
  3. RYDAPT [Suspect]
     Active Substance: MIDOSTAURIN
     Indication: ACUTE MYELOID LEUKAEMIA
     Dosage: UNK
     Route: 065
  4. CYTARABINE. [Suspect]
     Active Substance: CYTARABINE
     Indication: PRODUCT USED FOR UNKNOWN INDICATION
     Dosage: UNK (3G/M2)(2 DOSES EVERY SECOND DAY 6 DOSES IN ALL)
     Route: 065

REACTIONS (8)
  - Pruritus [Not Recovered/Not Resolved]
  - Skin discolouration [Not Recovered/Not Resolved]
  - Skin lesion inflammation [Not Recovered/Not Resolved]
  - Staphylococcal bacteraemia [Unknown]
  - Rash papular [Not Recovered/Not Resolved]
  - Tremor [Recovering/Resolving]
  - Aplasia [Unknown]
  - Bone marrow failure [Unknown]
